FAERS Safety Report 9250677 (Version 1)
Quarter: 2013Q1

REPORT INFORMATION
  Report Type: Spontaneous
  Country: US (occurrence: None)
  Receive Date: 20130305
  Receipt Date: 20130305
  Transmission Date: 20140127
  Serious: Yes (Other)
  Sender: FDA-Public Use
  Company Number: 163-21880-12042604

PATIENT
  Age: 77 Year
  Sex: Female

DRUGS (8)
  1. REVLIMID [Suspect]
     Indication: CHRONIC LYMPHOCYTIC LEUKAEMIA
     Route: 048
     Dates: start: 20120111, end: 2012
  2. METOPROLOL (METOPROLOL) [Concomitant]
  3. REMERON (MIRTAZAPINE) [Concomitant]
  4. HCTZ (HYDROCHLOROTHIAZIDE) [Concomitant]
  5. FOLIC ACID (FOLIC ACID0 [Concomitant]
  6. ASA (ACETYLSALICYLIC ACID) [Concomitant]
  7. VITAMIN D (ERGOCALCIFEROL) [Concomitant]
  8. PSYLLIUM (PSYLLIUM) [Concomitant]

REACTIONS (3)
  - Fatigue [None]
  - Weight decreased [None]
  - Decreased appetite [None]
